FAERS Safety Report 4417781-3 (Version None)
Quarter: 2004Q2

REPORT INFORMATION
  Report Type: 
  Country: None (occurrence: None)
  Receive Date: 20040621
  Receipt Date: 20040427
  Transmission Date: 20050107
  Serious: No
  Sender: FDA-Public Use
  Company Number: PHEH2004US04251

PATIENT
  Age: 57 Year
  Sex: Female

DRUGS (2)
  1. ZOMETA [Suspect]
     Indication: METASTASES TO BONE
     Dosage: 4 MG, QMO, INTRAVENOUS
     Route: 042
     Dates: start: 20030901
  2. ANASTROZOLE [Concomitant]

REACTIONS (4)
  - BONE DISORDER [None]
  - GINGIVAL OPERATION [None]
  - GINGIVAL RECESSION [None]
  - PAIN IN JAW [None]
